FAERS Safety Report 20297450 (Version 1)
Quarter: 2022Q1

REPORT INFORMATION
  Report Type: Spontaneous
  Country: US (occurrence: None)
  Receive Date: 20220105
  Receipt Date: 20220105
  Transmission Date: 20220423
  Serious: No
  Sender: FDA-Public Use
  Company Number: US-ROCHE-2918968

PATIENT
  Age: 14 Year
  Sex: Male
  Weight: 71.3 kg

DRUGS (1)
  1. HEMLIBRA [Suspect]
     Active Substance: EMICIZUMAB-KXWH
     Indication: Factor VIII deficiency
     Route: 058
     Dates: start: 201810

REACTIONS (3)
  - Traumatic haemorrhage [Unknown]
  - Ligament sprain [Unknown]
  - Off label use [Unknown]

NARRATIVE: CASE EVENT DATE: 20210909
